FAERS Safety Report 16429209 (Version 1)
Quarter: 2019Q2

REPORT INFORMATION
  Report Type: Spontaneous
  Country: GB (occurrence: GB)
  Receive Date: 20190614
  Receipt Date: 20190614
  Transmission Date: 20190711
  Serious: Yes (Hospitalization)
  Sender: FDA-Public Use
  Company Number: GB-SUN PHARMACEUTICAL INDUSTRIES LTD-2007RR-05780

PATIENT
  Age: 28 Year
  Sex: Male

DRUGS (3)
  1. TESTOSTERONE. [Concomitant]
     Active Substance: TESTOSTERONE
     Indication: BILATERAL ORCHIDECTOMY
     Route: 065
  2. SERTRALINE [Suspect]
     Active Substance: SERTRALINE HYDROCHLORIDE
     Indication: DEPRESSION
     Dosage: 50 MG, QD
     Route: 065
  3. HYPERICUM PERFORATUM [Suspect]
     Active Substance: HYPERICUM PERFORATUM
     Indication: DEPRESSION
     Route: 065

REACTIONS (2)
  - Drug interaction [Unknown]
  - Mania [Unknown]
